FAERS Safety Report 10878125 (Version 1)
Quarter: 2015Q1

REPORT INFORMATION
  Report Type: Spontaneous
  Country: US (occurrence: US)
  Receive Date: 20150302
  Receipt Date: 20150302
  Transmission Date: 20150721
  Serious: Yes (Other)
  Sender: FDA-Public Use
  Company Number: US-ABBVIE-14P-163-1324873-00

PATIENT
  Sex: Male

DRUGS (1)
  1. ANDROGEL [Suspect]
     Active Substance: TESTOSTERONE
     Indication: BLOOD TESTOSTERONE DECREASED
     Route: 061
     Dates: start: 2011

REACTIONS (7)
  - Peripheral venous disease [Not Recovered/Not Resolved]
  - Intra-abdominal haematoma [Unknown]
  - Emotional distress [Unknown]
  - Economic problem [Unknown]
  - Impaired work ability [Unknown]
  - Deep vein thrombosis [Not Recovered/Not Resolved]
  - Vasodilatation [Not Recovered/Not Resolved]

NARRATIVE: CASE EVENT DATE: 2012
